FAERS Safety Report 17024222 (Version 1)
Quarter: 2019Q4

REPORT INFORMATION
  Report Type: Spontaneous
  Country: IT (occurrence: IT)
  Receive Date: 20191113
  Receipt Date: 20191113
  Transmission Date: 20200122
  Serious: Yes (Hospitalization)
  Sender: FDA-Public Use
  Company Number: IT-SUN PHARMACEUTICAL INDUSTRIES LTD-2019RR-227270

PATIENT
  Age: 17 Year
  Sex: Male

DRUGS (2)
  1. RESILIENT 83 MG COMPRESSE A RILASCIO PROLUNGATO [Suspect]
     Active Substance: LITHIUM SULFATE
     Indication: AFFECTIVE DISORDER
     Dosage: 2 DOSAGE FORM, DAILY
     Route: 048
     Dates: start: 20190101, end: 20190918
  2. VENLAFAXINA RANBAXY [Suspect]
     Active Substance: VENLAFAXINE HYDROCHLORIDE
     Indication: DEPRESSION
     Dosage: 2 DOSAGE FORM, DAILY
     Route: 048
     Dates: start: 20190101, end: 20190918

REACTIONS (2)
  - Drug ineffective [Unknown]
  - Psychomotor hyperactivity [Unknown]

NARRATIVE: CASE EVENT DATE: 20190917
